FAERS Safety Report 13597180 (Version 1)
Quarter: 2017Q2

REPORT INFORMATION
  Report Type: Spontaneous
  Country: FR (occurrence: FR)
  Receive Date: 20170531
  Receipt Date: 20170531
  Transmission Date: 20170830
  Serious: Yes (Other)
  Sender: FDA-Public Use
  Company Number: FR-SEPTODONT-201703979

PATIENT
  Age: 34 Year
  Sex: Female

DRUGS (1)
  1. SEPTANEST 40 MG/ML ADR?NALIN?E AU 1/100.000 [Suspect]
     Active Substance: ARTICAINE HYDROCHLORIDE\EPINEPHRINE BITARTRATE
     Indication: LOCAL ANAESTHESIA
     Route: 004

REACTIONS (4)
  - Feeling abnormal [Unknown]
  - Fatigue [Unknown]
  - Bradycardia [Unknown]
  - Malaise [Unknown]

NARRATIVE: CASE EVENT DATE: 20170404
